FAERS Safety Report 8318125-7 (Version None)
Quarter: 2012Q2

REPORT INFORMATION
  Report Type: 
  Country: None (occurrence: None)
  Receive Date: 20120427
  Receipt Date: 20120419
  Transmission Date: 20120825
  Serious: Yes (Life-Threatening, Hospitalization)
  Sender: FDA-Public Use
  Company Number: BG-PFIZER INC-2012006691

PATIENT
  Age: 60 Year
  Sex: Male
  Weight: 84 kg

DRUGS (5)
  1. ASCORBIC ACID [Concomitant]
     Indication: HAEMATURIA
     Dosage: 1000 MG, UNK
     Dates: start: 20111220, end: 20120106
  2. TAMSULOSIN [Concomitant]
     Indication: BENIGN PROSTATIC HYPERPLASIA
     Dosage: 0.4 MG, UNK
     Dates: start: 20120103
  3. DURICEF [Concomitant]
     Indication: EPIDIDYMITIS
     Dosage: 1000 MG, UNK
     Dates: start: 20120103, end: 20120106
  4. AXITINIB [Suspect]
     Indication: RENAL CANCER METASTATIC
     Dosage: 10 MG, 2X/DAY
     Route: 048
     Dates: start: 20110315, end: 20111226
  5. DICYNONE [Concomitant]
     Indication: HAEMATURIA
     Dosage: 500 MG, UNK
     Dates: start: 20111220, end: 20120106

REACTIONS (1)
  - RETROPERITONEAL HAEMATOMA [None]
